FAERS Safety Report 13174348 (Version 2)
Quarter: 2017Q1

REPORT INFORMATION
  Report Type: Spontaneous
  Country: CA (occurrence: CA)
  Receive Date: 20170131
  Receipt Date: 20170203
  Transmission Date: 20170428
  Serious: Yes (Other)
  Sender: FDA-Public Use
  Company Number: CA-GE HEALTHCARE MEDICAL DIAGNOSTICS-OMPQ-PR-1701S-0193

PATIENT
  Age: 58 Year
  Sex: Female
  Weight: 65 kg

DRUGS (6)
  1. OMNIPAQUE [Suspect]
     Active Substance: IOHEXOL
     Indication: ANOSMIA
     Route: 042
     Dates: start: 20170125, end: 20170125
  2. PREDNISONE. [Concomitant]
     Active Substance: PREDNISONE
     Dates: start: 20170125, end: 20170125
  3. BENADRYL [Concomitant]
     Active Substance: DIPHENHYDRAMINE HYDROCHLORIDE
     Dates: start: 20170125, end: 20170125
  4. OMNIPAQUE [Suspect]
     Active Substance: IOHEXOL
     Indication: DIAGNOSTIC PROCEDURE
  5. HYPERTENSION MEDICATION (UNSPECIFIED) [Concomitant]
  6. PREDNISONE. [Concomitant]
     Active Substance: PREDNISONE
     Dates: start: 20170125, end: 20170125

REACTIONS (1)
  - Anaphylactic shock [Recovered/Resolved]

NARRATIVE: CASE EVENT DATE: 20170125
